FAERS Safety Report 19571702 (Version 1)
Quarter: 2021Q3

REPORT INFORMATION
  Report Type: Spontaneous
  Country: UY (occurrence: UY)
  Receive Date: 20210716
  Receipt Date: 20210716
  Transmission Date: 20211014
  Serious: Yes (Other)
  Sender: FDA-Public Use
  Company Number: UY-GLAXOSMITHKLINE-UY2021AMR151973

PATIENT
  Age: 8 Year
  Sex: Female

DRUGS (13)
  1. PHYSIOLOGICAL SERUM [Concomitant]
     Indication: ASTHMATIC CRISIS
     Dosage: 500 ML IN 30 MIN
  2. OXYGEN. [Concomitant]
     Active Substance: OXYGEN
     Indication: ASTHMATIC CRISIS
     Dosage: 5 L / MIN
  3. AMINOPHYLLINE. [Concomitant]
     Active Substance: AMINOPHYLLINE
     Dosage: 19 MG, Z (PER HOUR)
     Route: 042
  4. SALBUTAMOL [Suspect]
     Active Substance: ALBUTEROL
     Indication: ASTHMATIC CRISIS
     Dosage: UNK
     Route: 055
  5. PREDNISONE. [Concomitant]
     Active Substance: PREDNISONE
     Indication: ASTHMA
     Dosage: 60 MG
  6. HYDROCORTISONE INTRAVENOUS [Concomitant]
     Indication: ASTHMATIC CRISIS
     Dosage: 400 MG
     Route: 042
  7. OXYGEN. [Concomitant]
     Active Substance: OXYGEN
     Dosage: 70 L, Z (PER MINUTE)
  8. AMINOPHYLLINE. [Concomitant]
     Active Substance: AMINOPHYLLINE
     Indication: ASTHMATIC CRISIS
     Dosage: 160 MG (LOADING DOSE)
     Route: 042
  9. SALBUTAMOL [Suspect]
     Active Substance: ALBUTEROL
     Dosage: 5 MG, CONTINOUS
  10. SALBUTAMOL [Suspect]
     Active Substance: ALBUTEROL
     Dosage: 5 MG EVERY 20 MIN FOR 1 HRS
     Route: 055
  11. SALBUTAMOL [Suspect]
     Active Substance: ALBUTEROL
     Dosage: 3.75 MG
     Route: 055
  12. IPRATROPIUM BROMIDE. [Concomitant]
     Active Substance: IPRATROPIUM BROMIDE
     Indication: ASTHMA
     Dosage: 6 PUFF(S), Z (EVERY 20 MIN FOR ONE HOUR)
     Route: 055
  13. MAGNESIUM SULFATE. [Concomitant]
     Active Substance: MAGNESIUM SULFATE
     Indication: ASTHMATIC CRISIS
     Dosage: 1750 MG

REACTIONS (7)
  - Hyperlactacidaemia [Recovered/Resolved]
  - Psychomotor hyperactivity [Recovered/Resolved]
  - Tremor [Recovered/Resolved]
  - Hypokalaemia [Recovered/Resolved]
  - Hallucination [Recovered/Resolved]
  - Hyperglycaemia [Recovered/Resolved]
  - Metabolic acidosis [Recovered/Resolved]
